FAERS Safety Report 5910482-1 (Version None)
Quarter: 2008Q4

REPORT INFORMATION
  Report Type: 
  Country: None (occurrence: None)
  Receive Date: 20081007
  Receipt Date: 20080201
  Transmission Date: 20090506
  Serious: No
  Sender: FDA-Public Use
  Company Number: US-ASTRAZENECA-2008UW01862

PATIENT
  Age: 42 Year
  Sex: Female
  Weight: 65.8 kg

DRUGS (4)
  1. ARIMIDEX [Suspect]
     Indication: BREAST CANCER
     Route: 048
  2. BONIVA [Concomitant]
  3. CALCIUM [Concomitant]
  4. VITAMIN D [Concomitant]

REACTIONS (4)
  - ALOPECIA [None]
  - ARTHRALGIA [None]
  - DRY THROAT [None]
  - OROPHARYNGEAL PAIN [None]
